FAERS Safety Report 5385711-6 (Version None)
Quarter: 2007Q3

REPORT INFORMATION
  Report Type: 
  Country: None (occurrence: None)
  Receive Date: 20070712
  Receipt Date: 20070710
  Transmission Date: 20080115
  Serious: Yes (Disabling)
  Sender: FDA-Public Use
  Company Number: US-BRISTOL-MYERS SQUIBB COMPANY-13712104

PATIENT
  Age: 60 Year
  Sex: Female

DRUGS (5)
  1. ORENCIA [Suspect]
     Indication: RHEUMATOID ARTHRITIS
     Route: 042
     Dates: start: 20061102
  2. METHOTREXATE [Suspect]
  3. ENBREL [Concomitant]
  4. PREDNISONE [Concomitant]
  5. ARAVA [Concomitant]

REACTIONS (2)
  - LIVER FUNCTION TEST ABNORMAL [None]
  - PULMONARY TUBERCULOSIS [None]
